FAERS Safety Report 17709237 (Version 3)
Quarter: 2020Q3

REPORT INFORMATION
  Report Type: Report from Study
  Country: None (occurrence: US)
  Receive Date: 20200426
  Receipt Date: 20200818
  Transmission Date: 20201102
  Serious: Yes (Hospitalization, Other)
  Sender: FDA-Public Use
  Company Number: US-ABBVIE-20K-163-3375609-00

PATIENT
  Age: 70 Year
  Sex: Female
  Weight: 50.85 kg

DRUGS (1)
  1. VENCLEXTA [Suspect]
     Active Substance: VENETOCLAX
     Indication: CHRONIC LYMPHOCYTIC LEUKAEMIA
     Route: 048
     Dates: start: 20181105, end: 20200810

REACTIONS (5)
  - Anisocytosis [Not Recovered/Not Resolved]
  - Contusion [Not Recovered/Not Resolved]
  - Femur fracture [Recovered/Resolved]
  - Retinal vascular thrombosis [Not Recovered/Not Resolved]
  - Fall [Recovered/Resolved]

NARRATIVE: CASE EVENT DATE: 20200104
